FAERS Safety Report 5267525-0 (Version None)
Quarter: 2007Q1

REPORT INFORMATION
  Report Type: 
  Country: None (occurrence: None)
  Receive Date: 20061213
  Receipt Date: 20030729
  Transmission Date: 20070707
  Serious: No
  Sender: FDA-Public Use
  Company Number: 2003UW09586

PATIENT
  Age: 61 Year
  Sex: Female
  Weight: 68.0396 kg

DRUGS (2)
  1. TAMOXIFEN [Suspect]
     Dates: start: 20010101
  2. ASPIRIN [Concomitant]

REACTIONS (1)
  - ENDOMETRIAL HYPERTROPHY [None]
